FAERS Safety Report 10441606 (Version 2)
Quarter: 2014Q3

REPORT INFORMATION
  Report Type: Spontaneous
  Country: US (occurrence: US)
  Receive Date: 20140908
  Receipt Date: 20140919
  Transmission Date: 20150326
  Serious: Yes (Hospitalization, Other)
  Sender: FDA-Public Use
  Company Number: CHPA2014US011633

PATIENT
  Sex: Female

DRUGS (2)
  1. MINERAL ICE PAIN RELIEVING [Suspect]
     Active Substance: MENTHOL
     Indication: OFF LABEL USE
  2. MINERAL ICE PAIN RELIEVING [Suspect]
     Active Substance: MENTHOL
     Indication: ARTHRALGIA
     Dosage: A TINY BIT
     Route: 061

REACTIONS (3)
  - Arthritis [Not Recovered/Not Resolved]
  - Syncope [Recovered/Resolved]
  - Gait disturbance [Recovered/Resolved]

NARRATIVE: CASE EVENT DATE: 20140401
